FAERS Safety Report 8355065-1 (Version None)
Quarter: 2012Q2

REPORT INFORMATION
  Report Type: 
  Country: None (occurrence: None)
  Receive Date: 20120511
  Receipt Date: 20120426
  Transmission Date: 20120825
  Serious: Yes (Hospitalization)
  Sender: FDA-Public Use
  Company Number: FR-PURDUE-GBR-2012-0009859

PATIENT
  Age: 57 Year
  Sex: Female

DRUGS (4)
  1. ZOLPIDEM [Interacting]
     Indication: PRODUCT USED FOR UNKNOWN INDICATION
     Dosage: UNK
     Dates: end: 20111230
  2. NEURONTIN [Suspect]
     Indication: PRODUCT USED FOR UNKNOWN INDICATION
     Dosage: UNK
     Route: 048
     Dates: end: 20111230
  3. DURAGESIC-100 [Suspect]
     Indication: PRODUCT USED FOR UNKNOWN INDICATION
     Dosage: UNK
     Dates: end: 20111230
  4. OXYCODONE HYDROCHLORIDE [Interacting]
     Indication: PAIN
     Dosage: UNK
     Dates: end: 20111230

REACTIONS (5)
  - DRUG INTERACTION [None]
  - COMA [None]
  - LUNG DISORDER [None]
  - POISONING [None]
  - PULMONARY EMBOLISM [None]
